FAERS Safety Report 10498630 (Version 1)
Quarter: 2014Q4

REPORT INFORMATION
  Report Type: Spontaneous
  Country: FR (occurrence: FR)
  Receive Date: 20141006
  Receipt Date: 20141006
  Transmission Date: 20150528
  Serious: Yes (Death, Other)
  Sender: FDA-Public Use
  Company Number: PHHY2014FR128687

PATIENT
  Age: 25 Year
  Sex: Female

DRUGS (5)
  1. NICARDIPINE [Suspect]
     Active Substance: NICARDIPINE
     Indication: PRODUCT USED FOR UNKNOWN INDICATION
     Route: 065
  2. BROMOCRIPTINE [Suspect]
     Active Substance: BROMOCRIPTINE
     Indication: PRODUCT USED FOR UNKNOWN INDICATION
     Dosage: 2.5 MG, BID
     Route: 065
  3. DOBUTAMINE [Suspect]
     Active Substance: DOBUTAMINE\DOBUTAMINE HYDROCHLORIDE
     Indication: PRODUCT USED FOR UNKNOWN INDICATION
     Route: 065
  4. BROMOCRIPTINE [Suspect]
     Active Substance: BROMOCRIPTINE
     Dosage: 2.5 MG, QD
     Route: 065
  5. COROTROPE [Suspect]
     Active Substance: MILRINONE
     Indication: PRODUCT USED FOR UNKNOWN INDICATION
     Route: 065

REACTIONS (21)
  - Condition aggravated [Unknown]
  - General physical health deterioration [Unknown]
  - Hypertension [None]
  - Mitral valve incompetence [Unknown]
  - Premature labour [None]
  - Caesarean section [None]
  - Treatment failure [Unknown]
  - Peripartum cardiomyopathy [Unknown]
  - Ejection fraction [Unknown]
  - Immune thrombocytopenic purpura [None]
  - No therapeutic response [None]
  - Sinus tachycardia [None]
  - HELLP syndrome [None]
  - Hepatocellular injury [None]
  - Heart transplant [None]
  - Right ventricular dysfunction [Unknown]
  - Pre-eclampsia [None]
  - Acute pulmonary oedema [None]
  - Respiratory acidosis [None]
  - Hypoxia [None]
  - Multi-organ failure [None]
